FAERS Safety Report 4828898-3 (Version None)
Quarter: 2005Q4

REPORT INFORMATION
  Report Type: 
  Country: None (occurrence: None)
  Receive Date: 20051114
  Receipt Date: 20051114
  Transmission Date: 20060501
  Serious: Yes (Hospitalization, Other)
  Sender: FDA-Public Use
  Company Number: None

PATIENT
  Sex: Female
  Weight: 79.83 kg

DRUGS (3)
  1. TEMOZOLOMIDE [Suspect]
     Indication: NON-SMALL CELL LUNG CANCER
     Dosage: SEE IMAGE
     Dates: start: 20051031, end: 20051106
  2. RADIATION [Suspect]
     Dosage: SEE IMAGE
     Dates: start: 20051031
  3. DECADRON [Suspect]
     Dosage: SEE IMAGE
     Dates: start: 20051031

REACTIONS (5)
  - CONVULSION [None]
  - FALL [None]
  - INTERNATIONAL NORMALISED RATIO INCREASED [None]
  - METASTASIS [None]
  - NEOPLASM PROGRESSION [None]
